FAERS Safety Report 5450146-4 (Version None)
Quarter: 2007Q3

REPORT INFORMATION
  Report Type: 
  Country: None (occurrence: None)
  Receive Date: 20070912
  Receipt Date: 20070910
  Transmission Date: 20080115
  Serious: Yes (Hospitalization)
  Sender: FDA-Public Use
  Company Number: B0484446A

PATIENT
  Age: 75 Year
  Sex: Male
  Weight: 51 kg

DRUGS (8)
  1. VALTREX [Suspect]
     Indication: HERPES ZOSTER
     Dosage: 500MG THREE TIMES PER DAY
     Route: 048
     Dates: start: 20070818, end: 20070820
  2. AMOBAN [Concomitant]
     Indication: INSOMNIA
     Dosage: 7.5MG PER DAY
     Route: 048
  3. ALFAROL [Concomitant]
     Indication: HYPERPARATHYROIDISM
     Dosage: .25MG PER DAY
     Route: 048
  4. TICLOPIDINE HCL [Concomitant]
     Indication: PROPHYLAXIS
     Dosage: 100MG PER DAY
     Route: 048
  5. POLLAKISU [Concomitant]
     Indication: POLLAKIURIA
     Dosage: 2MG PER DAY
     Route: 048
  6. POLARAMINE [Concomitant]
     Indication: PRURITUS
     Dosage: 4MG PER DAY
     Route: 048
  7. MERISLON [Concomitant]
     Indication: DIZZINESS
     Route: 048
     Dates: start: 20070820, end: 20070820
  8. TANKARU [Concomitant]
     Dosage: 500MG PER DAY
     Route: 048

REACTIONS (6)
  - ALTERED STATE OF CONSCIOUSNESS [None]
  - BLOOD CREATININE INCREASED [None]
  - BLOOD UREA INCREASED [None]
  - DIZZINESS [None]
  - ENCEPHALOPATHY [None]
  - HALLUCINATION [None]
